FAERS Safety Report 19276707 (Version 3)
Quarter: 2022Q1

REPORT INFORMATION
  Report Type: Spontaneous
  Country: CA (occurrence: CA)
  Receive Date: 20210519
  Receipt Date: 20220214
  Transmission Date: 20220423
  Serious: Yes (Other)
  Sender: FDA-Public Use
  Company Number: CA-ANIPHARMA-2021-CA-000647

PATIENT
  Age: 55 Year
  Sex: Male

DRUGS (3)
  1. CANDESARTAN CILEXETIL [Suspect]
     Active Substance: CANDESARTAN CILEXETIL
     Indication: Hypertension
     Dosage: 32 MG QD / 8 MG UNK
     Route: 048
  2. PONATINIB [Suspect]
     Active Substance: PONATINIB
     Indication: Chronic myeloid leukaemia
     Dosage: UNKNOWN DOSE AND FREQUENCY
     Route: 048
  3. HYDROCHLOROTHIAZIDE [Suspect]
     Active Substance: HYDROCHLOROTHIAZIDE
     Indication: Hypertension
     Dosage: 25 MG QD
     Route: 065

REACTIONS (5)
  - Renal artery stenosis [Recovered/Resolved]
  - Blood creatinine increased [Recovered/Resolved]
  - Renal artery angioplasty [Recovered/Resolved]
  - Blood creatinine increased [Recovered/Resolved]
  - Renal artery stent placement [Recovered/Resolved]
